FAERS Safety Report 9310700 (Version 2)
Quarter: 2013Q3

REPORT INFORMATION
  Report Type: Report from Study
  Country: US (occurrence: US)
  Receive Date: 20130527
  Receipt Date: 20130704
  Transmission Date: 20140515
  Serious: Yes (Other)
  Sender: FDA-Public Use
  Company Number: US-ROCHE-1224519

PATIENT
  Sex: 0

DRUGS (4)
  1. BEVACIZUMAB [Suspect]
     Indication: BREAST CANCER METASTATIC
     Route: 065
  2. TRASTUZUMAB [Suspect]
     Indication: BREAST CANCER METASTATIC
     Dosage: LOADING DOSE
     Route: 065
  3. TRASTUZUMAB [Suspect]
     Route: 065
  4. VINORELBINE [Suspect]
     Indication: BREAST CANCER METASTATIC
     Route: 065

REACTIONS (23)
  - Neutrophil count abnormal [Unknown]
  - Pyrexia [Unknown]
  - Left ventricular dysfunction [Unknown]
  - Febrile neutropenia [Unknown]
  - Fatigue [Unknown]
  - Anaemia [Unknown]
  - Hepatic enzyme abnormal [Unknown]
  - Nausea [Unknown]
  - Headache [Unknown]
  - Hyperglycaemia [Unknown]
  - Diarrhoea [Unknown]
  - Vomiting [Unknown]
  - Infection [Unknown]
  - Pain in extremity [Unknown]
  - Hypertension [Unknown]
  - Dyspnoea [Unknown]
  - Abdominal pain [Unknown]
  - Back pain [Unknown]
  - Arthralgia [Unknown]
  - Dehydration [Unknown]
  - Dizziness [Unknown]
  - Ejection fraction decreased [Unknown]
  - Deep vein thrombosis [Unknown]
